FAERS Safety Report 15160311 (Version 2)
Quarter: 2018Q3

REPORT INFORMATION
  Report Type: Spontaneous
  Country: DE (occurrence: DE)
  Receive Date: 20180718
  Receipt Date: 20180802
  Transmission Date: 20181010
  Serious: Yes (Hospitalization)
  Sender: FDA-Public Use
  Company Number: DE-TEVA-2018-DE-926390

PATIENT
  Age: 77 Year
  Sex: Female

DRUGS (11)
  1. SULTAMICILLIN [Suspect]
     Active Substance: SULTAMICILLIN
     Indication: PNEUMONIA
     Route: 065
  2. DECRISTOL [Concomitant]
     Route: 065
  3. PANTOZOL [Concomitant]
     Active Substance: PANTOPRAZOLE SODIUM
     Route: 065
  4. PREDNICARBATE. [Suspect]
     Active Substance: PREDNICARBATE
     Route: 061
  5. L?THYROXINE [Concomitant]
     Active Substance: LEVOTHYROXINE
     Route: 065
  6. METHYLPREDNISOLONE. [Suspect]
     Active Substance: METHYLPREDNISOLONE
     Route: 050
  7. TOREM [Concomitant]
     Active Substance: TORSEMIDE
     Route: 065
  8. CLOBETASOL [Suspect]
     Active Substance: CLOBETASOL
     Route: 061
  9. AMLODIPINE [Concomitant]
     Active Substance: AMLODIPINE BESYLATE
     Route: 065
  10. BISOPROLOL [Concomitant]
     Active Substance: BISOPROLOL
     Route: 065
  11. TILIDINE [Concomitant]
     Active Substance: TILIDINE
     Route: 065

REACTIONS (3)
  - Bacteraemia [Recovering/Resolving]
  - Ecthyma [Recovering/Resolving]
  - Escherichia infection [Recovering/Resolving]
